FAERS Safety Report 10279067 (Version 1)
Quarter: 2014Q3

REPORT INFORMATION
  Report Type: Report from Study
  Country: ZA (occurrence: ZA)
  Receive Date: 20140707
  Receipt Date: 20140707
  Transmission Date: 20150326
  Serious: Yes (Death)
  Sender: FDA-Public Use
  Company Number: ZA-ROCHE-CID000000003453192

PATIENT
  Age: 71 Year
  Sex: Male

DRUGS (8)
  1. EPOETIN BETA [Suspect]
     Active Substance: ERYTHROPOIETIN
     Route: 065
     Dates: start: 201306
  2. EPOETIN BETA [Suspect]
     Active Substance: ERYTHROPOIETIN
     Dosage: DOSE DECREASED
     Route: 065
     Dates: start: 201312
  3. EPOETIN BETA [Suspect]
     Active Substance: ERYTHROPOIETIN
     Route: 065
     Dates: start: 200909, end: 201204
  4. MIRCERA [Suspect]
     Active Substance: PEGZEREPOETIN ALFA
     Dosage: DECREASED
     Route: 058
     Dates: start: 201212
  5. VENOFER [Concomitant]
     Active Substance: IRON SUCROSE
     Route: 065
  6. EPOETIN BETA [Suspect]
     Active Substance: ERYTHROPOIETIN
     Indication: NEPHROGENIC ANAEMIA
     Route: 058
     Dates: start: 201401, end: 201403
  7. MIRCERA [Suspect]
     Active Substance: PEGZEREPOETIN ALFA
     Indication: NEPHROGENIC ANAEMIA
     Route: 058
     Dates: start: 201204
  8. MIRCERA [Suspect]
     Active Substance: PEGZEREPOETIN ALFA
     Dosage: INCREASED
     Route: 058
     Dates: start: 201303, end: 201306

REACTIONS (2)
  - Brain injury [Fatal]
  - Road traffic accident [Fatal]

NARRATIVE: CASE EVENT DATE: 201404
